FAERS Safety Report 4462128-X (Version None)
Quarter: 2004Q3

REPORT INFORMATION
  Report Type: 
  Country: None (occurrence: None)
  Receive Date: 20040923
  Receipt Date: 20040909
  Transmission Date: 20050211
  Serious: Yes (Other)
  Sender: FDA-Public Use
  Company Number: 601437

PATIENT
  Age: 1 Year
  Sex: Male
  Weight: 12.8 kg

DRUGS (1)
  1. RECOMBINATE [Suspect]
     Indication: FACTOR VIII DEFICIENCY
     Dosage: 1000 IU;TIW;INTRAVENOUS
     Route: 042
     Dates: start: 20040201

REACTIONS (7)
  - COAGULATION FACTOR XIII LEVEL DECREASED [None]
  - COAGULOPATHY [None]
  - FACTOR VIII INHIBITION [None]
  - FALL [None]
  - HAEMARTHROSIS [None]
  - INTRACRANIAL HAEMATOMA [None]
  - MUSCLE HAEMORRHAGE [None]
